FAERS Safety Report 5429802-X (Version None)
Quarter: 2007Q3

REPORT INFORMATION
  Report Type: 
  Country: None (occurrence: None)
  Receive Date: 20070827
  Receipt Date: 20070821
  Transmission Date: 20080115
  Serious: Yes (Death, Hospitalization)
  Sender: FDA-Public Use
  Company Number: 163-20785-07060330

PATIENT
  Age: 79 Year
  Sex: Female

DRUGS (1)
  1. THALOMID [Suspect]
     Indication: MULTIPLE MYELOMA
     Dosage: 150-100 MG, DAILY, ORAL
     Route: 048
     Dates: start: 20040227

REACTIONS (6)
  - BACK PAIN [None]
  - CHEST PAIN [None]
  - COMPRESSION FRACTURE [None]
  - MULTIPLE MYELOMA [None]
  - PANCYTOPENIA [None]
  - URINARY TRACT INFECTION [None]
